FAERS Safety Report 9547128 (Version 1)
Quarter: 2013Q2

REPORT INFORMATION
  Report Type: Spontaneous
  Country: US (occurrence: None)
  Receive Date: 20130524
  Receipt Date: 20130524
  Transmission Date: 20140414
  Serious: No
  Sender: FDA-Public Use
  Company Number: PHEH2012US024507

PATIENT
  Age: 41 Year
  Sex: Male

DRUGS (6)
  1. GILENYA (FINGOLIMOD) CAPSULE, 0.5MG [Suspect]
     Indication: MULTIPLE SCLEROSIS
     Route: 048
     Dates: start: 20111201
  2. XANAX (ALPRAZOLAM) [Concomitant]
     Route: 048
  3. LORTAB (HYDROCODONE BITARTRATE, PARACETAMOL) [Concomitant]
  4. BACLOFEN (BACLOFEN) [Concomitant]
  5. FLEXERIL (CYCLOBENZAPRINE HYDROCHLORIDE) [Concomitant]
  6. GABAPENINE (GABAPENTIN) [Concomitant]

REACTIONS (2)
  - Hepatic enzyme increased [None]
  - Inappropriate schedule of drug administration [None]
